FAERS Safety Report 23178732 (Version 3)
Quarter: 2024Q1

REPORT INFORMATION
  Report Type: Spontaneous
  Country: US (occurrence: US)
  Receive Date: 20231113
  Receipt Date: 20240104
  Transmission Date: 20240409
  Serious: Yes (Other)
  Sender: FDA-Public Use
  Company Number: US-PFIZER INC-2019238930

PATIENT
  Age: 28 Year
  Sex: Male

DRUGS (3)
  1. BENEFIX [Suspect]
     Active Substance: COAGULATION FACTOR IX RECOMBINANT HUMAN\ISOPROPYL ALCOHOL
     Indication: Haemorrhage
     Dosage: 100 IU/KG, AS NEEDED (8300 UNITS (+/-10%) = 100 UNITS/KG DAILY ON DEMAND FOR A BLEED)
  2. BENEFIX [Suspect]
     Active Substance: COAGULATION FACTOR IX RECOMBINANT HUMAN\ISOPROPYL ALCOHOL
     Dosage: 900 IU, AS NEEDED (900 UNITS (+5% ) = 100 UNITS/KG DAILY ON DEMAND FOR A BLEED)
  3. BENEFIX [Suspect]
     Active Substance: COAGULATION FACTOR IX RECOMBINANT HUMAN\ISOPROPYL ALCOHOL
     Dosage: 7900 IU, DAILY ((+/-10%) = 100 UNITS/KG DAILY X1 FOR A BLEED ON DEMAND)

REACTIONS (1)
  - Haemorrhage [Unknown]
